FAERS Safety Report 9860624 (Version 1)
Quarter: 2014Q1

REPORT INFORMATION
  Report Type: Spontaneous
  Country: IT (occurrence: None)
  Receive Date: 20140130
  Receipt Date: 20140130
  Transmission Date: 20141002
  Serious: Yes (Life-Threatening)
  Sender: FDA-Public Use
  Company Number: 2148158

PATIENT
  Age: 50 Year
  Sex: Female

DRUGS (2)
  1. OXALIPLATIN [Suspect]
     Indication: COLON CANCER
     Dosage: 220 MG MILLIGRAM(S) (CYCLICAL), INTRAVENOUS (NOT OTHERWISE SPECIFIED)?
     Route: 042
     Dates: start: 20131125, end: 20131210
  2. XELODA [Concomitant]

REACTIONS (4)
  - Erythema [None]
  - Malaise [None]
  - Dyspnoea [None]
  - Nausea [None]
